FAERS Safety Report 5309660-4 (Version None)
Quarter: 2007Q2

REPORT INFORMATION
  Report Type: 
  Country: None (occurrence: None)
  Receive Date: 20070427
  Receipt Date: 20060828
  Transmission Date: 20071010
  Serious: No
  Sender: FDA-Public Use
  Company Number: US-GLAXOSMITHKLINE-A0618236A

PATIENT
  Age: 28 Year
  Sex: Male

DRUGS (6)
  1. DEXEDRINE [Suspect]
     Indication: ATTENTION DEFICIT/HYPERACTIVITY DISORDER
     Dosage: 15MG FOUR TIMES PER DAY
     Route: 048
  2. LITHIUM CARBONATE [Concomitant]
  3. MALARONE [Concomitant]
  4. COGENTIN [Concomitant]
  5. SYNTHROID [Concomitant]
  6. STOOL SOFTENER [Concomitant]

REACTIONS (3)
  - ANXIETY [None]
  - CONDITION AGGRAVATED [None]
  - DRUG INEFFECTIVE [None]
